FAERS Safety Report 6069151-2 (Version None)
Quarter: 2009Q1

REPORT INFORMATION
  Report Type: 
  Country: None (occurrence: None)
  Receive Date: 20090203
  Receipt Date: 20090130
  Transmission Date: 20090719
  Serious: Yes (Disabling, Other)
  Sender: FDA-Public Use
  Company Number: ADE2009-0433

PATIENT
  Age: 78 Year
  Sex: Male

DRUGS (4)
  1. SIMVASTATIN [Suspect]
     Dosage: 40 MG - QD - ORAL
     Route: 048
     Dates: start: 20051101
  2. ZOLADEX [Concomitant]
  3. WARFARIN SODIUM [Concomitant]
  4. ITRACONAZOLE [Concomitant]

REACTIONS (9)
  - ABASIA [None]
  - BLOOD CREATINE PHOSPHOKINASE INCREASED [None]
  - BRONCHOPULMONARY ASPERGILLOSIS [None]
  - DRUG TOXICITY [None]
  - MUSCLE DISORDER [None]
  - MYALGIA [None]
  - NERVE STIMULATION TEST NORMAL [None]
  - POLYNEUROPATHY [None]
  - UBIQUINONE DECREASED [None]
